FAERS Safety Report 6534441-3 (Version None)
Quarter: 2010Q1

REPORT INFORMATION
  Report Type: 
  Country: None (occurrence: None)
  Receive Date: 20100112
  Receipt Date: 20100107
  Transmission Date: 20100710
  Serious: Yes (Other)
  Sender: FDA-Public Use
  Company Number: DE-AMGEN-US374821

PATIENT
  Age: 50 Year
  Sex: Female

DRUGS (6)
  1. ENBREL [Suspect]
     Indication: RHEUMATOID ARTHRITIS
     Route: 058
     Dates: start: 20070326, end: 20091201
  2. ENBREL [Suspect]
     Indication: POLYARTHRITIS
  3. SYNTESTAN [Concomitant]
     Indication: RHEUMATOID ARTHRITIS
     Dosage: 5-25 MG PER DAY
     Route: 048
  4. SYNTESTAN [Concomitant]
     Indication: POLYARTHRITIS
  5. METHOTREXATE [Concomitant]
     Indication: RHEUMATOID ARTHRITIS
     Route: 058
  6. METHOTREXATE [Concomitant]
     Indication: POLYARTHRITIS

REACTIONS (14)
  - AMBLYOPIA [None]
  - APHASIA [None]
  - BLOOD TEST ABNORMAL [None]
  - CEREBROSPINAL FLUID RETENTION [None]
  - CEREBROVASCULAR ACCIDENT [None]
  - DEPRESSION [None]
  - FATIGUE [None]
  - HAEMATOMA [None]
  - HEMIPARESIS [None]
  - HYPERHIDROSIS [None]
  - IRON DEFICIENCY [None]
  - LISTLESS [None]
  - PSORIASIS [None]
  - TACHYCARDIA [None]
